FAERS Safety Report 21642120 (Version 1)
Quarter: 2022Q4

REPORT INFORMATION
  Report Type: Report from Study
  Country: US (occurrence: US)
  Receive Date: 20221125
  Receipt Date: 20221125
  Transmission Date: 20230113
  Serious: No
  Sender: FDA-Public Use
  Company Number: US-002147023-NVSC2022US265398

PATIENT
  Sex: Male
  Weight: 93.4 kg

DRUGS (10)
  1. TREPROSTINIL [Suspect]
     Active Substance: TREPROSTINIL
     Indication: Pulmonary arterial hypertension
     Dosage: UNK, CONT
     Route: 048
     Dates: start: 20220628
  2. TREPROSTINIL [Suspect]
     Active Substance: TREPROSTINIL
     Dosage: UNK, CONT
     Route: 048
  3. TREPROSTINIL [Suspect]
     Active Substance: TREPROSTINIL
     Dosage: UNK, CONT
     Route: 048
  4. TREPROSTINIL [Suspect]
     Active Substance: TREPROSTINIL
     Dosage: 21 MG, Q8H
     Route: 048
     Dates: start: 202211
  5. TREPROSTINIL [Suspect]
     Active Substance: TREPROSTINIL
     Dosage: 27 MG, TID
     Route: 048
     Dates: start: 20221103
  6. TREPROSTINIL [Suspect]
     Active Substance: TREPROSTINIL
     Dosage: 66 NG/KG/MIN, CONT
     Route: 065
     Dates: start: 20210818
  7. TREPROSTINIL [Suspect]
     Active Substance: TREPROSTINIL
     Dosage: 89 NG/KG/MIN, CONT
     Route: 065
     Dates: start: 20210818
  8. TADALAFIL [Concomitant]
     Active Substance: TADALAFIL
     Indication: Product used for unknown indication
     Dosage: UNK
     Route: 065
  9. AMLODIPINE [Concomitant]
     Active Substance: AMLODIPINE BESYLATE
     Indication: Product used for unknown indication
     Dosage: UNK
     Route: 065
  10. OPSUMIT [Concomitant]
     Active Substance: MACITENTAN
     Indication: Product used for unknown indication
     Dosage: UNK
     Route: 065

REACTIONS (1)
  - Illness [Recovering/Resolving]
